FAERS Safety Report 5964464-4 (Version None)
Quarter: 2008Q4

REPORT INFORMATION
  Report Type: 
  Country: None (occurrence: None)
  Receive Date: 20081124
  Receipt Date: 20081124
  Transmission Date: 20090506
  Serious: Yes (Life-Threatening, Hospitalization, Other)
  Sender: FDA-Public Use
  Company Number: None

PATIENT
  Age: 55 Year
  Sex: Female
  Weight: 48.0813 kg

DRUGS (1)
  1. LYRICA [Suspect]
     Indication: PAIN
     Dosage: 75 MG 2X DAY PO
     Route: 048
     Dates: start: 20070202, end: 20070302

REACTIONS (29)
  - ARTHRALGIA [None]
  - BURNING SENSATION [None]
  - CHEST DISCOMFORT [None]
  - CONDITION AGGRAVATED [None]
  - CRYING [None]
  - DRUG TOLERANCE [None]
  - DYSPNOEA [None]
  - FATIGUE [None]
  - GENERAL PHYSICAL HEALTH DETERIORATION [None]
  - GRIP STRENGTH DECREASED [None]
  - INJURY [None]
  - INSOMNIA [None]
  - JOINT STIFFNESS [None]
  - JOINT SWELLING [None]
  - MIDDLE INSOMNIA [None]
  - MOVEMENT DISORDER [None]
  - MUSCULOSKELETAL PAIN [None]
  - MYALGIA [None]
  - NECK PAIN [None]
  - OEDEMA PERIPHERAL [None]
  - PAIN [None]
  - PAIN IN EXTREMITY [None]
  - PANIC ATTACK [None]
  - ROAD TRAFFIC ACCIDENT [None]
  - SCIATICA [None]
  - SLEEP DISORDER [None]
  - SYNCOPE [None]
  - WEIGHT INCREASED [None]
  - WHEEZING [None]
